FAERS Safety Report 8989221 (Version 1)
Quarter: 2012Q4

REPORT INFORMATION
  Report Type: 
  Country: BR (occurrence: BR)
  Receive Date: 20121228
  Receipt Date: 20121228
  Transmission Date: 20130627
  Serious: Yes (Other)
  Sender: FDA-Public Use
  Company Number: PHHY2012BR119179

PATIENT
  Sex: Female
  Weight: 31 kg

DRUGS (1)
  1. SANDOSTATIN LAR [Suspect]
     Dosage: 20 mg two injections monthly
     Route: 064

REACTIONS (3)
  - Protein C deficiency [Recovered/Resolved]
  - Haematochezia [Recovered/Resolved]
  - Gastrooesophageal reflux disease [Recovered/Resolved]
